FAERS Safety Report 6869439-9 (Version None)
Quarter: 2010Q3

REPORT INFORMATION
  Report Type: 
  Country: None (occurrence: None)
  Receive Date: 20100722
  Receipt Date: 20080726
  Transmission Date: 20110219
  Serious: No
  Sender: FDA-Public Use
  Company Number: US-PFIZER INC-2008063118

PATIENT
  Sex: Female
  Weight: 60.78 kg

DRUGS (12)
  1. CHANTIX [Suspect]
     Indication: SMOKING CESSATION THERAPY
     Dates: start: 20070101
  2. CEPHALEXIN [Suspect]
     Indication: PAIN IN EXTREMITY
     Dates: start: 20080722
  3. LIPITOR [Concomitant]
  4. METHOCARBAMOL [Concomitant]
  5. ZYPREXA [Concomitant]
  6. IBUPROFEN [Concomitant]
  7. SEROQUEL [Concomitant]
  8. CARBAMAZEPINE [Concomitant]
  9. CLONAZEPAM [Concomitant]
  10. PERCOCET [Concomitant]
  11. ACTIVELLA [Concomitant]
  12. OMEPRAZOLE [Concomitant]

REACTIONS (4)
  - ABNORMAL DREAMS [None]
  - CONSTIPATION [None]
  - PAIN IN EXTREMITY [None]
  - VOMITING [None]
